FAERS Safety Report 17616464 (Version 1)
Quarter: 2020Q2

REPORT INFORMATION
  Report Type: Spontaneous
  Country: US (occurrence: US)
  Receive Date: 20200402
  Receipt Date: 20200402
  Transmission Date: 20200713
  Serious: Yes (Other)
  Sender: FDA-Public Use
  Company Number: US-AMGEN-USASP2020048394

PATIENT
  Age: 16 Year
  Sex: Male

DRUGS (1)
  1. DARBEPOETIN ALFA [Suspect]
     Active Substance: DARBEPOETIN ALFA
     Indication: HAEMOGLOBIN DECREASED
     Dosage: 0.5 MICROGRAM/KILOGRAM, QWK
     Route: 042

REACTIONS (5)
  - Anaemia vitamin B6 deficiency [Unknown]
  - Drug resistance [Unknown]
  - Ceruloplasmin increased [Unknown]
  - Blood parathyroid hormone increased [Unknown]
  - Serum ferritin increased [Unknown]
